FAERS Safety Report 5898283-4 (Version None)
Quarter: 2008Q3

REPORT INFORMATION
  Report Type: 
  Country: None (occurrence: None)
  Receive Date: 20080925
  Receipt Date: 20070831
  Transmission Date: 20090109
  Serious: No
  Sender: FDA-Public Use
  Company Number: A0671258A

PATIENT
  Age: 30 Year
  Sex: Female
  Weight: 54.5 kg

DRUGS (3)
  1. WELLBUTRIN XL [Suspect]
     Indication: POST-TRAUMATIC STRESS DISORDER
     Dosage: 300MG PER DAY
     Route: 048
     Dates: start: 20070730, end: 20070810
  2. VISTARIL [Concomitant]
  3. KLONOPIN [Concomitant]

REACTIONS (3)
  - DIARRHOEA [None]
  - MALAISE [None]
  - STOMACH DISCOMFORT [None]
